FAERS Safety Report 8289274-7 (Version None)
Quarter: 2012Q2

REPORT INFORMATION
  Report Type: 
  Country: None (occurrence: None)
  Receive Date: 20120417
  Receipt Date: 20120412
  Transmission Date: 20120825
  Serious: Yes (Hospitalization)
  Sender: FDA-Public Use
  Company Number: PHHY2012IT030981

PATIENT
  Sex: Female

DRUGS (7)
  1. ASPIRIN [Concomitant]
  2. LORAZEPAM [Suspect]
     Indication: COGNITIVE DISORDER
     Dosage: 2.5 MG, UNK
     Route: 048
     Dates: start: 20120325, end: 20120325
  3. LANSOPRAZOLE [Concomitant]
  4. LASIX [Concomitant]
  5. CALCITRIOL [Concomitant]
  6. RAMIPRIL [Concomitant]
  7. CITALOPRAM [Concomitant]

REACTIONS (3)
  - EATING DISORDER [None]
  - ASTHENIA [None]
  - MUSCULAR WEAKNESS [None]
